FAERS Safety Report 24651420 (Version 5)
Quarter: 2025Q2

REPORT INFORMATION
  Report Type: Spontaneous
  Country: US (occurrence: US)
  Receive Date: 20241122
  Receipt Date: 20250430
  Transmission Date: 20250716
  Serious: Yes (Other)
  Sender: UCB
  Company Number: US-UCBSA-2024053982

PATIENT
  Age: 48 Year
  Sex: Male

DRUGS (4)
  1. CIMZIA [Suspect]
     Active Substance: CERTOLIZUMAB PEGOL
     Indication: Crohn^s disease
     Dosage: 200 MILLIGRAM, EV 2 WEEKS(QOW)
     Route: 058
     Dates: start: 202309
  2. CIMZIA [Suspect]
     Active Substance: CERTOLIZUMAB PEGOL
     Dosage: 400 MILLIGRAM, EV 4 WEEKS
     Route: 058
  3. PREDNISONE [Concomitant]
     Active Substance: PREDNISONE
     Indication: Product used for unknown indication
  4. OXYCONTIN [Concomitant]
     Active Substance: OXYCODONE HYDROCHLORIDE
     Indication: Product used for unknown indication

REACTIONS (5)
  - Crohn^s disease [Unknown]
  - Pain in extremity [Unknown]
  - Peripheral swelling [Unknown]
  - Drug ineffective [Unknown]
  - Syringe issue [Unknown]

NARRATIVE: CASE EVENT DATE: 20241001
